FAERS Safety Report 21719435 (Version 16)
Quarter: 2024Q3

REPORT INFORMATION
  Report Type: Spontaneous
  Country: US (occurrence: US)
  Receive Date: 20221213
  Receipt Date: 20240708
  Transmission Date: 20241017
  Serious: Yes (Hospitalization, Other)
  Sender: ROCHE
  Company Number: US-ROCHE-3232005

PATIENT
  Age: 65 Year
  Sex: Female
  Weight: 97.52 kg

DRUGS (17)
  1. AVASTIN [Suspect]
     Active Substance: BEVACIZUMAB
     Indication: Diabetic retinopathy
     Route: 050
     Dates: start: 20181228
  2. AVASTIN [Suspect]
     Active Substance: BEVACIZUMAB
     Indication: Diabetic retinal oedema
     Route: 050
     Dates: start: 20200814
  3. AVASTIN [Suspect]
     Active Substance: BEVACIZUMAB
     Indication: Macular oedema
     Dosage: 25 MG/ML
     Route: 050
     Dates: start: 20190123
  4. AVASTIN [Suspect]
     Active Substance: BEVACIZUMAB
     Route: 050
     Dates: start: 20210601
  5. AVASTIN [Suspect]
     Active Substance: BEVACIZUMAB
     Route: 050
     Dates: start: 20210910
  6. METFORMIN [Concomitant]
     Active Substance: METFORMIN HYDROCHLORIDE
  7. ANCEF (UNITED STATES) [Concomitant]
  8. FLUCONAZOLE [Concomitant]
     Active Substance: FLUCONAZOLE
  9. LORTAB [Concomitant]
     Active Substance: ACETAMINOPHEN\HYDROCODONE BITARTRATE
  10. LIDOCAINE [Concomitant]
     Active Substance: LIDOCAINE
  11. BUPIVACAINE [Concomitant]
     Active Substance: BUPIVACAINE
  12. HYDROCHLOROTHIAZIDE [Concomitant]
     Active Substance: HYDROCHLOROTHIAZIDE
  13. GLIPIZIDE [Concomitant]
     Active Substance: GLIPIZIDE
  14. EZETIMIBE [Concomitant]
     Active Substance: EZETIMIBE
  15. TORADOL [Concomitant]
     Active Substance: KETOROLAC TROMETHAMINE
  16. LOSARTAN [Concomitant]
     Active Substance: LOSARTAN
  17. MECLIZINE [Concomitant]
     Active Substance: MECLIZINE HYDROCHLORIDE

REACTIONS (73)
  - Eye pain [Unknown]
  - Blindness unilateral [Unknown]
  - Anxiety [Unknown]
  - Headache [Unknown]
  - Off label use [Unknown]
  - Product contamination [Unknown]
  - Suspected transmission of an infectious agent via product [Unknown]
  - Product complaint [Unknown]
  - Anhedonia [Unknown]
  - Cataract nuclear [Unknown]
  - Conjunctival haemorrhage [Unknown]
  - Mycotic endophthalmitis [Unknown]
  - Iridocyclitis [Unknown]
  - Ocular hyperaemia [Unknown]
  - Visual impairment [Unknown]
  - Vitreous opacities [Unknown]
  - Dizziness [Unknown]
  - Rhinitis allergic [Unknown]
  - Urinary tract infection [Unknown]
  - Cough [Unknown]
  - Rheumatic fever [Unknown]
  - Chest pain [Unknown]
  - Gait disturbance [Unknown]
  - Retinal detachment [Recovered/Resolved]
  - Urinary incontinence [Recovered/Resolved]
  - Blood alkaline phosphatase decreased [Unknown]
  - Bacterial endophthalmitis [Unknown]
  - Rhegmatogenous retinal detachment [Unknown]
  - Corneal epithelium defect [Unknown]
  - Corneal oedema [Unknown]
  - Vision blurred [Unknown]
  - Visual acuity reduced [Unknown]
  - Corneal epithelium defect [Recovered/Resolved]
  - Nausea [Unknown]
  - Depression [Unknown]
  - White blood cell count increased [Unknown]
  - Neutrophil count increased [Unknown]
  - Lymphocyte count increased [Unknown]
  - Haemoglobin decreased [Unknown]
  - Haematocrit decreased [Unknown]
  - Blood glucose decreased [Unknown]
  - Retinal tear [Recovered/Resolved]
  - Retinal haemorrhage [Unknown]
  - Macular oedema [Unknown]
  - Exposure to communicable disease [Unknown]
  - Osteopenia [Unknown]
  - Breast fibrosis [Unknown]
  - Mydriasis [Unknown]
  - Eye movement disorder [Unknown]
  - Conjunctival discolouration [Unknown]
  - Hypoaesthesia [Unknown]
  - Cataract [Unknown]
  - Retinal disorder [Unknown]
  - Limb injury [Unknown]
  - Weight increased [Unknown]
  - Muscular weakness [Unknown]
  - Pain in extremity [Unknown]
  - Discomfort [Unknown]
  - Embolism venous [Recovered/Resolved]
  - Nosocomial infection [Recovered/Resolved]
  - Aphakia [Unknown]
  - Swelling of eyelid [Unknown]
  - Mass [Unknown]
  - Coronary artery disease [Unknown]
  - Corneal degeneration [Unknown]
  - Macular degeneration [Unknown]
  - Eyelid ptosis [Unknown]
  - Iris atrophy [Unknown]
  - Conjunctival vascular disorder [Unknown]
  - Retinopathy proliferative [Unknown]
  - Ocular hypertension [Unknown]
  - Corneal scar [Unknown]
  - Corneal opacity [Unknown]

NARRATIVE: CASE EVENT DATE: 20190523
